FAERS Safety Report 21493897 (Version 1)
Quarter: 2022Q4

REPORT INFORMATION
  Report Type: Spontaneous
  Country: CN (occurrence: CN)
  Receive Date: 20221021
  Receipt Date: 20221021
  Transmission Date: 20230113
  Serious: Yes (Other)
  Sender: FDA-Public Use
  Company Number: None

PATIENT
  Age: 49 Year
  Sex: Female
  Weight: 51 kg

DRUGS (4)
  1. CYCLOPHOSPHAMIDE [Suspect]
     Active Substance: CYCLOPHOSPHAMIDE
     Indication: Breast cancer female
     Dosage: 0.9 G, QD, DILUTED WITH 100 ML SODIUM CHLORIDE, FIRST CHEMOTHERAPY
     Route: 041
     Dates: start: 20220915, end: 20220915
  2. SODIUM CHLORIDE [Suspect]
     Active Substance: SODIUM CHLORIDE
     Indication: Medication dilution
     Dosage: 100 ML, QD ,DILUTED WITH CYCLOPHOSPHAMIDE FOR INJECTION 0.9 G, FIRST CHEMOTHERAPY
     Route: 041
     Dates: start: 20220915, end: 20220915
  3. SODIUM CHLORIDE [Suspect]
     Active Substance: SODIUM CHLORIDE
     Dosage: 100 ML QD DILUTED WITH EPIRUBICIN INJECTION 140 MG, FIRST CHEMOTHERAPY
     Route: 041
     Dates: start: 20220915, end: 20220915
  4. EPIRUBICIN [Suspect]
     Active Substance: EPIRUBICIN
     Indication: Breast cancer female
     Dosage: 140 MG, QD, DILUTED WITH 100 ML SODIUM CHLORIDE, FIRST CHEMOTHERAPY
     Route: 041
     Dates: start: 20220915, end: 20220915

REACTIONS (1)
  - Myelosuppression [Recovering/Resolving]

NARRATIVE: CASE EVENT DATE: 20220926
